FAERS Safety Report 25868780 (Version 1)
Quarter: 2025Q4

REPORT INFORMATION
  Report Type: Spontaneous
  Country: EU (occurrence: EU)
  Receive Date: 20251001
  Receipt Date: 20251001
  Transmission Date: 20260118
  Serious: Yes (Other)
  Sender: REGENERON
  Company Number: EU-BAYER-2025A128207

PATIENT
  Sex: Female

DRUGS (1)
  1. EYLEA HD [Suspect]
     Active Substance: AFLIBERCEPT
     Indication: Neovascular age-related macular degeneration
     Dosage: 8 MG, 114.3 MG/ML
     Route: 031

REACTIONS (2)
  - Ocular hypertension [Unknown]
  - Glaucoma [Unknown]
